FAERS Safety Report 11649324 (Version 1)
Quarter: 2015Q4

REPORT INFORMATION
  Report Type: Spontaneous
  Country: JP (occurrence: JP)
  Receive Date: 20151021
  Receipt Date: 20151021
  Transmission Date: 20160304
  Serious: Yes (Death)
  Sender: FDA-Public Use
  Company Number: JP-MALLINCKRODT-T201504872

PATIENT
  Age: 31 Year
  Sex: Male
  Weight: 77 kg

DRUGS (20)
  1. METHADONE [Suspect]
     Active Substance: METHADONE HYDROCHLORIDE
     Indication: CANCER PAIN
     Dosage: 5 MG, (15 MG DAILY DOSE)
     Route: 048
     Dates: start: 20150409, end: 20150416
  2. METHADONE [Suspect]
     Active Substance: METHADONE HYDROCHLORIDE
     Dosage: 20 MG, (40 MG DAILY DOSE)
     Route: 048
     Dates: start: 20150430, end: 20150507
  3. PREPENON [Concomitant]
     Active Substance: MORPHINE HYDROCHLORIDE
     Dosage: 72 MG
     Route: 051
     Dates: start: 20150513, end: 20150601
  4. PREPENON [Concomitant]
     Active Substance: MORPHINE HYDROCHLORIDE
     Dosage: 24 MG
     Route: 051
     Dates: start: 20150604, end: 20150607
  5. OXYCONTIN [Concomitant]
     Active Substance: OXYCODONE HYDROCHLORIDE
     Dosage: 160 MG
     Route: 048
     Dates: start: 20150430, end: 20150507
  6. METHADONE [Suspect]
     Active Substance: METHADONE HYDROCHLORIDE
     Dosage: 15 MG, (30 MG DAILY DOSE)
     Route: 048
     Dates: start: 20150423, end: 20150430
  7. OXYCONTIN [Concomitant]
     Active Substance: OXYCODONE HYDROCHLORIDE
     Indication: ANALGESIC THERAPY
     Dosage: 320 MG
     Route: 048
     Dates: start: 20150409, end: 20150423
  8. METHADONE [Suspect]
     Active Substance: METHADONE HYDROCHLORIDE
     Dosage: 10 MG, (20 MG DAILY DOSE)
     Route: 048
     Dates: start: 20150416, end: 20150423
  9. METHADONE [Suspect]
     Active Substance: METHADONE HYDROCHLORIDE
     Dosage: 25 MG, (50 MG DAILY DOSE)
     Route: 048
     Dates: start: 20150507, end: 20150514
  10. PREPENON [Concomitant]
     Active Substance: MORPHINE HYDROCHLORIDE
     Indication: ANALGESIC THERAPY
     Dosage: 12 MG, PRN
     Route: 051
     Dates: start: 20150409
  11. METHADONE [Suspect]
     Active Substance: METHADONE HYDROCHLORIDE
     Dosage: 30 MG, (60 MG DAILY DOSE)
     Route: 048
     Dates: start: 20150514, end: 20150524
  12. METHADONE [Suspect]
     Active Substance: METHADONE HYDROCHLORIDE
     Dosage: 40 MG, (80 MG DAILY DOSE)
     Route: 048
     Dates: start: 20150525, end: 20150728
  13. OXYCONTIN [Concomitant]
     Active Substance: OXYCODONE HYDROCHLORIDE
     Dosage: 240 MG
     Route: 048
     Dates: start: 20150423, end: 20150430
  14. OXYCONTIN [Concomitant]
     Active Substance: OXYCODONE HYDROCHLORIDE
     Dosage: 80 MG
     Route: 048
     Dates: start: 20150507, end: 20150514
  15. PREPENON [Concomitant]
     Active Substance: MORPHINE HYDROCHLORIDE
     Dosage: 168 MG
     Route: 051
     Dates: start: 20150409, end: 20150416
  16. PREPENON [Concomitant]
     Active Substance: MORPHINE HYDROCHLORIDE
     Dosage: 120 MG
     Route: 051
     Dates: start: 20150428, end: 20150506
  17. PREPENON [Concomitant]
     Active Substance: MORPHINE HYDROCHLORIDE
     Dosage: 96 MG
     Route: 051
     Dates: start: 20150506, end: 20150513
  18. PREPENON [Concomitant]
     Active Substance: MORPHINE HYDROCHLORIDE
     Dosage: 48 MG
     Route: 051
     Dates: start: 20150601, end: 20150604
  19. PREPENON [Concomitant]
     Active Substance: MORPHINE HYDROCHLORIDE
     Dosage: 144 MG
     Route: 051
     Dates: start: 20150416, end: 20150428
  20. FENTOS [Concomitant]
     Active Substance: FENTANYL
     Indication: ANALGESIC THERAPY
     Dosage: 4 MG
     Route: 062
     Dates: start: 20150126, end: 20150713

REACTIONS (1)
  - Osteosarcoma [Fatal]
